FAERS Safety Report 17375464 (Version 1)
Quarter: 2020Q1

REPORT INFORMATION
  Report Type: Spontaneous
  Country: DE (occurrence: DE)
  Receive Date: 20200205
  Receipt Date: 20200205
  Transmission Date: 20200409
  Serious: Yes (Other)
  Sender: FDA-Public Use
  Company Number: DE-PFIZER INC-2020049106

PATIENT
  Sex: Female

DRUGS (3)
  1. BRIVUDINE ARISTO [Suspect]
     Active Substance: BRIVUDINE
     Dosage: UNK
  2. NOVALGIN (METAMIZOLE SODIUM) [Suspect]
     Active Substance: METAMIZOLE SODIUM
     Dosage: UNK
  3. GABAPENTIN. [Suspect]
     Active Substance: GABAPENTIN
     Dosage: UNK

REACTIONS (2)
  - Skin irritation [Unknown]
  - Circulatory collapse [Unknown]
